FAERS Safety Report 6411147-2 (Version None)
Quarter: 2009Q4

REPORT INFORMATION
  Report Type: 
  Country: None (occurrence: None)
  Receive Date: 20091022
  Receipt Date: 20091013
  Transmission Date: 20100525
  Serious: Yes (Other)
  Sender: FDA-Public Use
  Company Number: US-PFIZER INC-2009283133

PATIENT
  Sex: Female
  Weight: 86.168 kg

DRUGS (3)
  1. XALATAN [Suspect]
     Indication: GLAUCOMA
     Dosage: UNK
     Dates: start: 20030101
  2. XALATAN [Suspect]
     Indication: INTRAOCULAR PRESSURE TEST
  3. TIMOLOL [Concomitant]

REACTIONS (4)
  - BLINDNESS [None]
  - MACULAR DEGENERATION [None]
  - NEPHRECTOMY [None]
  - VISUAL ACUITY REDUCED [None]
